FAERS Safety Report 4471388-0 (Version None)
Quarter: 2004Q4

REPORT INFORMATION
  Report Type: 
  Country: None (occurrence: None)
  Receive Date: 20041012
  Receipt Date: 20040930
  Transmission Date: 20050328
  Serious: Yes (Death)
  Sender: FDA-Public Use
  Company Number: US-JNJFOC-20040503309

PATIENT
  Sex: Male
  Weight: 60.5 kg

DRUGS (9)
  1. TOPAMAX [Suspect]
     Indication: HEADACHE
     Route: 049
     Dates: start: 20040404, end: 20040410
  2. TOPAMAX [Suspect]
     Route: 049
     Dates: start: 20040404, end: 20040410
  3. TOPAMAX [Suspect]
     Indication: MIGRAINE PROPHYLAXIS
     Route: 049
     Dates: start: 20040404, end: 20040410
  4. KEPPRA [Suspect]
     Route: 049
     Dates: start: 20030905, end: 20040410
  5. KEPPRA [Suspect]
     Indication: NEUROPATHIC PAIN
     Route: 049
     Dates: start: 20030905, end: 20040410
  6. PHENERGAN [Concomitant]
     Indication: NAUSEA
     Dosage: EVERY 6 HOURS, AS NEEDED
     Route: 049
     Dates: start: 20040301, end: 20040410
  7. DIFLUNISAL [Concomitant]
     Dates: start: 20031101, end: 20040410
  8. MAXALT-MLT [Concomitant]
     Indication: MIGRAINE
     Dosage: TAKEN AS NEEDED
     Route: 049
     Dates: start: 20040206, end: 20040410
  9. DURAGESIC [Concomitant]

REACTIONS (6)
  - COMPLETED SUICIDE [None]
  - DRUG SCREEN POSITIVE [None]
  - GUN SHOT WOUND [None]
  - HAEMORRHAGE [None]
  - MULTI-ORGAN DISORDER [None]
  - PETECHIAE [None]
